FAERS Safety Report 9282839 (Version 1)
Quarter: 2013Q2

REPORT INFORMATION
  Report Type: Spontaneous
  Country: US (occurrence: US)
  Receive Date: 20130510
  Receipt Date: 20130510
  Transmission Date: 20140414
  Serious: Yes (Other)
  Sender: FDA-Public Use
  Company Number: US-BRISTOL-MYERS SQUIBB COMPANY-18854265

PATIENT
  Age: 75 Year
  Sex: Male

DRUGS (1)
  1. ERBITUX [Suspect]

REACTIONS (4)
  - Malignant neoplasm progression [Unknown]
  - Laryngeal disorder [Unknown]
  - Dry skin [Unknown]
  - Nail disorder [Unknown]
